FAERS Safety Report 7778981-8 (Version None)
Quarter: 2011Q3

REPORT INFORMATION
  Report Type: 
  Country: None (occurrence: None)
  Receive Date: 20110926
  Receipt Date: 20110923
  Transmission Date: 20111222
  Serious: No
  Sender: FDA-Public Use
  Company Number: JP-PFIZER INC-2011128870

PATIENT
  Sex: Male

DRUGS (6)
  1. OLMESARTAN MEDOXOMIL [Concomitant]
     Dosage: UNK
  2. GLUCOBAY [Concomitant]
     Dosage: UNK
  3. PERINDOPRIL ERBUMINE [Concomitant]
     Dosage: UNK
  4. LIPITOR [Suspect]
     Dosage: 5 MG, 1X/DAY
     Route: 048
     Dates: end: 20110509
  5. FAMOTIDINE [Suspect]
     Dosage: 20 MG, 1X/DAY
     Route: 048
     Dates: end: 20110509
  6. NORVASC [Concomitant]
     Dosage: UNK

REACTIONS (2)
  - HEPATIC FUNCTION ABNORMAL [None]
  - ANAEMIA [None]
